FAERS Safety Report 4381529-1 (Version None)
Quarter: 2004Q2

REPORT INFORMATION
  Report Type: 
  Country: None (occurrence: None)
  Receive Date: 20040616
  Receipt Date: 20040605
  Transmission Date: 20050107
  Serious: Yes (Other)
  Sender: FDA-Public Use
  Company Number: 2004018483

PATIENT
  Age: 43 Year
  Sex: Female
  Weight: 94.3482 kg

DRUGS (5)
  1. DILANTIN [Suspect]
     Indication: CONVULSION
     Dosage: 500 MG (BID), ORAL
     Route: 048
     Dates: start: 20040118
  2. LAMOTRIGINE [Concomitant]
  3. CLORAZEPATE DIPOTASSIUM [Concomitant]
  4. LORAZEPAM [Concomitant]
  5. OXYBUTYNIN [Concomitant]

REACTIONS (2)
  - ANTICONVULSANT DRUG LEVEL BELOW THERAPEUTIC [None]
  - TREATMENT NONCOMPLIANCE [None]
